FAERS Safety Report 5412417-7 (Version None)
Quarter: 2007Q3

REPORT INFORMATION
  Report Type: 
  Country: None (occurrence: None)
  Receive Date: 20070813
  Receipt Date: 20070802
  Transmission Date: 20080115
  Serious: Yes (Hospitalization, Other)
  Sender: FDA-Public Use
  Company Number: US-MERCK-0608USA01324

PATIENT
  Age: 59 Year
  Sex: Female

DRUGS (15)
  1. FOSAMAX [Suspect]
     Indication: PROPHYLAXIS
     Route: 048
  2. FOSAMAX [Suspect]
     Route: 048
     Dates: end: 20041115
  3. CORTICOSTEROIDS (UNSPECIFIED) [Concomitant]
     Route: 065
     Dates: start: 20000101
  4. CALCIUM (UNSPECIFIED) [Concomitant]
     Route: 065
  5. CELEBREX [Concomitant]
     Indication: RHEUMATOID ARTHRITIS
     Route: 065
  6. DIOVAN [Concomitant]
     Route: 065
  7. FOLIC ACID [Concomitant]
     Indication: RHEUMATOID ARTHRITIS
     Route: 065
  8. HUMIRA [Concomitant]
     Route: 065
  9. MIRAPEX [Concomitant]
     Indication: RESTLESS LEGS SYNDROME
     Route: 065
  10. METHOTREXATE [Concomitant]
     Route: 065
  11. VITAMINS (UNSPECIFIED) [Concomitant]
     Route: 065
  12. PLAVIX [Concomitant]
     Route: 065
  13. PREDNISONE [Concomitant]
     Indication: RHEUMATOID ARTHRITIS
     Route: 065
  14. TRAZODONE HYDROCHLORIDE [Concomitant]
     Indication: RESTLESS LEGS SYNDROME
     Route: 065
  15. ZOLOFT [Concomitant]
     Route: 065

REACTIONS (32)
  - ANXIETY [None]
  - ARTERIAL OCCLUSIVE DISEASE [None]
  - ARTHROPATHY [None]
  - BRONCHITIS [None]
  - CHILLS [None]
  - CONSTIPATION [None]
  - DEAFNESS [None]
  - DEPRESSION [None]
  - DIARRHOEA [None]
  - DYSPHAGIA [None]
  - DYSPHONIA [None]
  - FOOT FRACTURE [None]
  - GASTRITIS EROSIVE [None]
  - HELICOBACTER INFECTION [None]
  - HIATUS HERNIA [None]
  - HIP FRACTURE [None]
  - IMPAIRED HEALING [None]
  - JAW FRACTURE [None]
  - LARYNGITIS [None]
  - NAUSEA [None]
  - NIGHT SWEATS [None]
  - ORAL HERPES [None]
  - OSTEOARTHRITIS [None]
  - OSTEOMYELITIS [None]
  - OSTEONECROSIS [None]
  - PNEUMONIA [None]
  - PYREXIA [None]
  - RHINITIS [None]
  - SINUSITIS [None]
  - URINARY TRACT INFECTION [None]
  - VOMITING [None]
  - WOUND DEHISCENCE [None]
